FAERS Safety Report 8216785-2 (Version None)
Quarter: 2012Q1

REPORT INFORMATION
  Report Type: 
  Country: None (occurrence: None)
  Receive Date: 20120316
  Receipt Date: 20120314
  Transmission Date: 20120608
  Serious: No
  Sender: FDA-Public Use
  Company Number: US-TEVA-328147USA

PATIENT
  Sex: Female
  Weight: 62.652 kg

DRUGS (2)
  1. COPAXONE [Suspect]
     Dosage: 20 MILLIGRAM;
     Route: 058
  2. GELNIQUE (OXYBUTYNIN) [Concomitant]

REACTIONS (1)
  - INJECTION SITE ERYTHEMA [None]
